FAERS Safety Report 13670964 (Version 1)
Quarter: 2017Q2

REPORT INFORMATION
  Report Type: Spontaneous
  Country: US (occurrence: US)
  Receive Date: 20170620
  Receipt Date: 20170620
  Transmission Date: 20170830
  Serious: No
  Sender: FDA-Public Use
  Company Number: US-PFIZER INC-2017263088

PATIENT
  Age: 55 Year
  Sex: Male
  Weight: 86 kg

DRUGS (5)
  1. GENOTROPIN [Suspect]
     Active Substance: SOMATROPIN
     Indication: PITUITARY-DEPENDENT CUSHING^S SYNDROME
  2. GENOTROPIN [Suspect]
     Active Substance: SOMATROPIN
     Indication: HYPOPITUITARISM
     Dosage: 0.3 MG, DAILY
     Route: 058
     Dates: start: 201701
  3. ANDROGEL [Concomitant]
     Active Substance: TESTOSTERONE
     Indication: PITUITARY-DEPENDENT CUSHING^S SYNDROME
     Dosage: 66.25, 1 PUMP PER DAY
     Dates: start: 2014
  4. PREDNISONE. [Concomitant]
     Active Substance: PREDNISONE
     Indication: PITUITARY-DEPENDENT CUSHING^S SYNDROME
     Dosage: 5 MG, 1X/DAY
     Dates: start: 201604
  5. LEVOTHYROXINE. [Concomitant]
     Active Substance: LEVOTHYROXINE
     Indication: PITUITARY-DEPENDENT CUSHING^S SYNDROME
     Dosage: 113 MG, 8 DOSES PER WEEK
     Dates: start: 2014

REACTIONS (4)
  - Drug dose omission [Unknown]
  - Nervousness [Recovering/Resolving]
  - Headache [Recovering/Resolving]
  - Device issue [Unknown]

NARRATIVE: CASE EVENT DATE: 20170612
